FAERS Safety Report 4617728-0 (Version None)
Quarter: 2005Q1

REPORT INFORMATION
  Report Type: 
  Country: None (occurrence: None)
  Receive Date: 20050324
  Receipt Date: 20050316
  Transmission Date: 20050727
  Serious: Yes (Other)
  Sender: FDA-Public Use
  Company Number: BR-ROCHE-399037

PATIENT
  Age: 24 Year
  Sex: Male
  Weight: 74 kg

DRUGS (3)
  1. RIVOTRIL [Suspect]
     Route: 048
     Dates: start: 20010615
  2. RIVOTRIL [Suspect]
     Route: 048
  3. AMITRIPTYLINE [Concomitant]
     Indication: DEPRESSION
     Route: 048

REACTIONS (9)
  - DEPRESSION [None]
  - DRUG WITHDRAWAL SYNDROME [None]
  - FEELING ABNORMAL [None]
  - HYPERHIDROSIS [None]
  - MUSCLE STRAIN [None]
  - SENSORY DISTURBANCE [None]
  - SUICIDAL IDEATION [None]
  - SYNCOPE [None]
  - TREMOR [None]
